FAERS Safety Report 23609409 (Version 1)
Quarter: 2024Q1

REPORT INFORMATION
  Report Type: Spontaneous
  Country: US (occurrence: US)
  Receive Date: 20240308
  Receipt Date: 20240308
  Transmission Date: 20240410
  Serious: No
  Sender: FDA-Public Use
  Company Number: US-ABBVIE-5663431

PATIENT
  Age: 31 Year
  Sex: Female

DRUGS (1)
  1. LILETTA [Suspect]
     Active Substance: LEVONORGESTREL
     Indication: Product used for unknown indication
     Dosage: TIME INTERVAL: AS NECESSARY: FORM STRENGTH: 52MG IUD
     Route: 015
     Dates: start: 20240201, end: 20240228

REACTIONS (2)
  - Device dislocation [Unknown]
  - Pelvic pain [Unknown]

NARRATIVE: CASE EVENT DATE: 20240228
